FAERS Safety Report 4412366-7 (Version None)
Quarter: 2004Q2

REPORT INFORMATION
  Report Type: 
  Country: None (occurrence: None)
  Receive Date: 20040630
  Receipt Date: 20040504
  Transmission Date: 20050107
  Serious: No
  Sender: FDA-Public Use
  Company Number: 04P-163-0259589-00

PATIENT
  Age: 41 Year
  Sex: Female
  Weight: 58.0604 kg

DRUGS (8)
  1. HUMIRA [Suspect]
     Indication: RHEUMATOID ARTHRITIS
     Dosage: 40 MG 1 IN 2 WK SUBCUTANEOUS
     Route: 058
     Dates: start: 20040115
  2. CETIRIZINE HCL [Concomitant]
  3. CONJUGATED ESTROGEN [Concomitant]
  4. NAPROXEN [Concomitant]
  5. VICODIN [Concomitant]
  6. IMITREX [Concomitant]
  7. METHOTREXATE [Concomitant]
  8. BUPROPION HYDROCHLORIDE [Concomitant]

REACTIONS (2)
  - INJECTION SITE PRURITUS [None]
  - INJECTION SITE RASH [None]
